FAERS Safety Report 5365444-2 (Version None)
Quarter: 2007Q2

REPORT INFORMATION
  Report Type: 
  Country: None (occurrence: None)
  Receive Date: 20070530
  Receipt Date: 20070115
  Transmission Date: 20071010
  Serious: No
  Sender: FDA-Public Use
  Company Number: 2007PV028454

PATIENT
  Age: 71 Year
  Sex: Female
  Weight: 83.9154 kg

DRUGS (8)
  1. BYETTA [Suspect]
     Indication: DIABETES MELLITUS NON-INSULIN-DEPENDENT
     Dosage: 10 MCG; BID; SC; 5 MCG; BID; SC
     Route: 058
     Dates: start: 20060217, end: 20060319
  2. BYETTA [Suspect]
     Indication: DIABETES MELLITUS NON-INSULIN-DEPENDENT
     Dosage: 10 MCG; BID; SC; 5 MCG; BID; SC
     Route: 058
     Dates: start: 20060320
  3. METFORMIN HCL [Concomitant]
  4. GLIPIZIDE [Concomitant]
  5. GLIPIZIDE [Concomitant]
  6. FLIPIZIDE [Concomitant]
  7. GLIPIZIDE [Concomitant]
  8. VYTORIN [Concomitant]

REACTIONS (13)
  - ASTHENIA [None]
  - ASTHMA [None]
  - BENIGN LUNG NEOPLASM [None]
  - BLOOD GLUCOSE DECREASED [None]
  - BLOOD GLUCOSE INCREASED [None]
  - BLOOD TRIGLYCERIDES INCREASED [None]
  - DIARRHOEA [None]
  - FEELING ABNORMAL [None]
  - GLYCOSYLATED HAEMOGLOBIN INCREASED [None]
  - SARCOIDOSIS [None]
  - STRESS [None]
  - TREMOR [None]
  - WEIGHT DECREASED [None]
